FAERS Safety Report 22386915 (Version 1)
Quarter: 2023Q2

REPORT INFORMATION
  Report Type: Spontaneous
  Country: US (occurrence: US)
  Receive Date: 20230531
  Receipt Date: 20230531
  Transmission Date: 20230722
  Serious: No
  Sender: FDA-Public Use
  Company Number: US-VIIV HEALTHCARE LIMITED-US2023AMR072765

PATIENT

DRUGS (4)
  1. RILPIVIRINE [Suspect]
     Active Substance: RILPIVIRINE
     Indication: Product used for unknown indication
     Dosage: UNK, MO (CABOTGRAVIR 200 MG/ML, RILPIVIRIN 300 MG/ML X 3 ML)
     Route: 030
     Dates: start: 20211008
  2. RILPIVIRINE [Suspect]
     Active Substance: RILPIVIRINE
     Dosage: UNK UNK, Q2M (CABOTGRAVIR 200 MG/ML, RILPIVIRIN 300 MG/ML X 3 ML)
     Route: 030
     Dates: start: 20220929
  3. CABOTEGRAVIR [Suspect]
     Active Substance: CABOTEGRAVIR
     Indication: Product used for unknown indication
     Dosage: UNK, MO (CABOTGRAVIR 200 MG/ML, RILPIVIRIN 300 MG/ML X 3 ML)
     Route: 030
     Dates: start: 20211008
  4. CABOTEGRAVIR [Suspect]
     Active Substance: CABOTEGRAVIR
     Dosage: UNK UNK, Q2M (CABOTGRAVIR 200 MG/ML, RILPIVIRIN 300 MG/ML X 3 ML)
     Route: 030
     Dates: start: 20220929

REACTIONS (1)
  - Viral load increased [Unknown]

NARRATIVE: CASE EVENT DATE: 20230418
